FAERS Safety Report 16332300 (Version 1)
Quarter: 2019Q2

REPORT INFORMATION
  Report Type: Spontaneous
  Country: US (occurrence: US)
  Receive Date: 20190520
  Receipt Date: 20190520
  Transmission Date: 20190711
  Serious: No
  Sender: FDA-Public Use
  Company Number: US-PFIZER INC-2019210823

PATIENT
  Sex: Female

DRUGS (2)
  1. EFFEXOR XR [Suspect]
     Active Substance: VENLAFAXINE HYDROCHLORIDE
     Indication: DEPRESSION
     Dosage: 300 MG, UNK
  2. REXULTI [Suspect]
     Active Substance: BREXPIPRAZOLE
     Indication: DEPRESSION
     Dosage: 2 MG, 1X/DAY
     Route: 048
     Dates: start: 2018

REACTIONS (1)
  - Blood glucose increased [Not Recovered/Not Resolved]
